FAERS Safety Report 10230418 (Version 2)
Quarter: 2014Q2

REPORT INFORMATION
  Report Type: Spontaneous
  Country: US (occurrence: US)
  Receive Date: 20140611
  Receipt Date: 20140611
  Transmission Date: 20141212
  Serious: No
  Sender: FDA-Public Use
  Company Number: US-INCYTE CORPORATION-2014IN000469

PATIENT
  Age: 75 Year
  Sex: Male

DRUGS (8)
  1. JAKAFI [Suspect]
     Indication: MYELOFIBROSIS
     Dosage: 20 MG, BID
     Route: 048
     Dates: start: 20131205, end: 20140314
  2. ALLOPURINOL [Concomitant]
     Dosage: 200 MG, UNK
  3. CALCIUM [Concomitant]
     Dosage: 500 MG, UNK
  4. FINASTERIDE [Concomitant]
     Dosage: 5 MG, UNK
  5. MAG-OX [Concomitant]
     Dosage: 400 MG/10 ML, UNK
  6. MEGESTROL [Concomitant]
     Dosage: 400MG/10ML
  7. SOTALOL [Concomitant]
     Dosage: 200 MG, UNK
  8. VIT D3 [Concomitant]

REACTIONS (3)
  - Hospice care [Unknown]
  - White blood cell count increased [Unknown]
  - Haemoglobin decreased [Unknown]
